FAERS Safety Report 4621349-3 (Version None)
Quarter: 2005Q1

REPORT INFORMATION
  Report Type: 
  Country: None (occurrence: None)
  Receive Date: 20050324
  Receipt Date: 20050324
  Transmission Date: 20050727
  Serious: Yes (Other)
  Sender: FDA-Public Use
  Company Number: None

PATIENT
  Age: 69 Year
  Sex: Female
  Weight: 63.05 kg

DRUGS (15)
  1. MOBIC [Suspect]
     Indication: HEADACHE
     Dosage: ONE PILL    DAILY   ORAL
     Route: 048
     Dates: start: 20050205, end: 20050323
  2. MOBIC [Suspect]
     Indication: NECK PAIN
     Dosage: ONE PILL    DAILY   ORAL
     Route: 048
     Dates: start: 20050205, end: 20050323
  3. CARDIZEM [Concomitant]
  4. IMDUR [Concomitant]
  5. LESCOL [Concomitant]
  6. ZETIA [Concomitant]
  7. FOLIC ACID [Concomitant]
  8. HOMECYSTEINE [Concomitant]
  9. CO  Q  10 [Concomitant]
  10. VIT C [Concomitant]
  11. VIT E [Concomitant]
  12. FISH OIL [Concomitant]
  13. FLAXSEED OIL [Concomitant]
  14. ASPIRIN [Concomitant]
  15. DEMADEX [Concomitant]

REACTIONS (3)
  - ANXIETY [None]
  - PAIN IN EXTREMITY [None]
  - TACHYCARDIA [None]
